FAERS Safety Report 19239080 (Version 1)
Quarter: 2021Q2

REPORT INFORMATION
  Report Type: Spontaneous
  Country: US (occurrence: US)
  Receive Date: 20210510
  Receipt Date: 20210510
  Transmission Date: 20210717
  Serious: Yes (Death)
  Sender: FDA-Public Use
  Company Number: US-SECURA BIO, INC.-2021-SECUR-US003308

PATIENT

DRUGS (1)
  1. COPIKTRA [Suspect]
     Active Substance: DUVELISIB
     Indication: FOLLICULAR LYMPHOMA STAGE III
     Dosage: UNK
     Route: 048
     Dates: start: 20201110, end: 20210402

REACTIONS (1)
  - Death [Fatal]

NARRATIVE: CASE EVENT DATE: 20210402
